FAERS Safety Report 15566999 (Version 1)
Quarter: 2018Q4

REPORT INFORMATION
  Report Type: Spontaneous
  Country: DE (occurrence: DE)
  Receive Date: 20181030
  Receipt Date: 20181030
  Transmission Date: 20190205
  Serious: Yes (Hospitalization, Other)
  Sender: FDA-Public Use
  Company Number: DE-GLAXOSMITHKLINE-DE2018195596

PATIENT
  Age: 65 Year
  Sex: Male

DRUGS (2)
  1. FLUNITRAZEPAM [Suspect]
     Active Substance: FLUNITRAZEPAM
     Indication: MENTAL DISORDER
     Dosage: UNK
     Route: 065
     Dates: start: 19980521, end: 19980521
  2. SCOPOLAMINE [Suspect]
     Active Substance: SCOPOLAMINE
     Indication: PREMEDICATION
     Route: 065
     Dates: start: 20030521, end: 20030521

REACTIONS (1)
  - Intussusception [Recovering/Resolving]

NARRATIVE: CASE EVENT DATE: 19980521
